FAERS Safety Report 7837672 (Version 3)
Quarter: 2013Q1

REPORT INFORMATION
  Report Type: Spontaneous
  Country: US (occurrence: US)
  Receive Date: 20110302
  Receipt Date: 20130122
  Transmission Date: 20140127
  Serious: Yes (Hospitalization, Other)
  Sender: FDA-Public Use
  Company Number: US-PFIZER INC-2010007245

PATIENT
  Age: 77 Year
  Sex: Male

DRUGS (5)
  1. DILANTIN [Suspect]
     Indication: CONVULSION
     Dosage: 100 MG, 3X/DAY
     Route: 048
     Dates: start: 200804, end: 20080701
  2. DILANTIN [Suspect]
     Dosage: 100 MG, 2X/DAY
     Route: 048
     Dates: start: 20080701, end: 20080721
  3. AZITHROMYCIN [Concomitant]
     Dosage: 500 MG, UNK
     Dates: start: 20080710
  4. HYDROCODONE W/ACETAMINOPHEN [Concomitant]
     Dosage: UNK
     Dates: start: 20080716
  5. CEFADROXIL [Concomitant]
     Dosage: 500 MG, UNK
     Dates: start: 20080716

REACTIONS (1)
  - Stevens-Johnson syndrome [Recovering/Resolving]
